FAERS Safety Report 19254949 (Version 1)
Quarter: 2021Q2

REPORT INFORMATION
  Report Type: Spontaneous
  Country: US (occurrence: US)
  Receive Date: 20210513
  Receipt Date: 20210513
  Transmission Date: 20210717
  Serious: Yes (Other)
  Sender: FDA-Public Use
  Company Number: US-PFIZER INC-2021476469

PATIENT
  Age: 79 Year
  Sex: Female

DRUGS (1)
  1. XANAX [Suspect]
     Active Substance: ALPRAZOLAM

REACTIONS (7)
  - Blindness [Unknown]
  - Asthenia [Unknown]
  - Dysstasia [Unknown]
  - Memory impairment [Unknown]
  - Respiratory disorder [Unknown]
  - Fall [Unknown]
  - Head injury [Unknown]
